FAERS Safety Report 9439379 (Version 1)
Quarter: 2013Q3

REPORT INFORMATION
  Report Type: Spontaneous
  Country: AU (occurrence: AU)
  Receive Date: 20130805
  Receipt Date: 20130805
  Transmission Date: 20140515
  Serious: Yes (Other)
  Sender: FDA-Public Use
  Company Number: AU-ROCHE-1256554

PATIENT
  Age: 67 Year
  Sex: Male

DRUGS (8)
  1. AVASTIN [Suspect]
     Indication: COLORECTAL CANCER METASTATIC
     Route: 065
  2. AVASTIN [Suspect]
     Indication: METASTASES TO LIVER
  3. FOLINIC ACID [Suspect]
     Indication: COLORECTAL CANCER METASTATIC
     Route: 065
  4. FOLINIC ACID [Suspect]
     Indication: METASTASES TO LIVER
  5. FLUOROURACIL [Suspect]
     Indication: COLORECTAL CANCER METASTATIC
     Route: 065
  6. FLUOROURACIL [Suspect]
     Indication: METASTASES TO LIVER
  7. OXALIPLATIN [Suspect]
     Indication: COLORECTAL CANCER METASTATIC
     Route: 065
  8. OXALIPLATIN [Suspect]
     Indication: METASTASES TO LIVER

REACTIONS (2)
  - Mucous membrane disorder [Unknown]
  - Rectal haemorrhage [Unknown]
